FAERS Safety Report 16962876 (Version 1)
Quarter: 2019Q4

REPORT INFORMATION
  Report Type: Spontaneous
  Country: CA (occurrence: CA)
  Receive Date: 20191025
  Receipt Date: 20191025
  Transmission Date: 20200122
  Serious: Yes (Other)
  Sender: FDA-Public Use
  Company Number: CA-TEVA-2019-CA-1127027

PATIENT
  Age: 41 Year
  Sex: Female

DRUGS (5)
  1. FISH OIL [Concomitant]
     Active Substance: FISH OIL
  2. ACETAMINOPHEN. [Concomitant]
     Active Substance: ACETAMINOPHEN
  3. VITAMIN D [COLECALCIFEROL] [Concomitant]
     Active Substance: CHOLECALCIFEROL
     Route: 048
  4. MEDROXYPROGESTERONE ACETATE. [Suspect]
     Active Substance: MEDROXYPROGESTERONE ACETATE
     Indication: PRODUCT USED FOR UNKNOWN INDICATION
     Route: 065
  5. COLD A TAK OREGANO OIL [Concomitant]

REACTIONS (2)
  - Stress fracture [Unknown]
  - Osteoporosis [Unknown]
